FAERS Safety Report 9553611 (Version 1)
Quarter: 2013Q3

REPORT INFORMATION
  Report Type: Spontaneous
  Country: AU (occurrence: None)
  Receive Date: 20130923
  Receipt Date: 20130923
  Transmission Date: 20140515
  Serious: Yes (Other)
  Sender: FDA-Public Use
  Company Number: 2013P1019317

PATIENT
  Age: 64 Day
  Sex: 0

DRUGS (1)
  1. PROPRANOLOL [Suspect]
     Indication: HAEMANGIOMA

REACTIONS (3)
  - Heart rate decreased [None]
  - Floppy infant [None]
  - Apnoea [None]
